FAERS Safety Report 9026001 (Version 1)
Quarter: 2013Q1

REPORT INFORMATION
  Report Type: Spontaneous
  Country: BR (occurrence: BR)
  Receive Date: 20130122
  Receipt Date: 20130122
  Transmission Date: 20140127
  Serious: Yes (Other)
  Sender: FDA-Public Use
  Company Number: BR-AMGEN-BRACT2011018012

PATIENT
  Age: 41 Year
  Sex: Male
  Weight: 67 kg

DRUGS (10)
  1. ENBREL [Suspect]
     Indication: ANKYLOSING SPONDYLITIS
     Dosage: 50 MG, ONCE WEEKLY
     Route: 058
     Dates: start: 201101
  2. ENBREL [Suspect]
     Dosage: 50 MG, QWK
     Route: 058
     Dates: start: 201207, end: 201212
  3. FLUOXETINE [Concomitant]
     Dosage: 40 MG, 1X/DAY (2 TABLETS OF 20MG IN THE MORNING)
     Dates: start: 2006
  4. VALPROIC ACID [Concomitant]
     Dosage: 250 MG, 1X/DAY
     Dates: start: 2010
  5. RIVOTRIL [Concomitant]
     Dosage: 2X/DAY  2MG AT 5 DROPS
     Dates: start: 2003
  6. OMEPRAZOLE [Concomitant]
     Dosage: 20 MG, 1X/DAY
     Dates: start: 2006
  7. FOLIC ACID [Concomitant]
     Dosage: UNK
     Dates: start: 2009
  8. DOLAMIN                            /00729302/ [Concomitant]
     Dosage: UNK
     Dates: end: 201209
  9. PARACETAMOL [Concomitant]
     Indication: PYREXIA
     Dosage: UNK
  10. PARACETAMOL [Concomitant]
     Indication: PAIN

REACTIONS (13)
  - Pyrexia [Not Recovered/Not Resolved]
  - Formication [Unknown]
  - Hypoaesthesia [Unknown]
  - Blood pressure abnormal [Unknown]
  - Nervousness [Unknown]
  - Arthralgia [Unknown]
  - Pharyngeal haemorrhage [Not Recovered/Not Resolved]
  - Haemoptysis [Not Recovered/Not Resolved]
  - Blister [Not Recovered/Not Resolved]
  - Pruritus [Not Recovered/Not Resolved]
  - Wound secretion [Not Recovered/Not Resolved]
  - Productive cough [Not Recovered/Not Resolved]
  - Rash pustular [Unknown]
